FAERS Safety Report 7330012-X (Version None)
Quarter: 2011Q1

REPORT INFORMATION
  Report Type: 
  Country: None (occurrence: None)
  Receive Date: 20110303
  Receipt Date: 20110221
  Transmission Date: 20110831
  Serious: Yes (Hospitalization)
  Sender: FDA-Public Use
  Company Number: KR-GENENTECH-297187

PATIENT
  Sex: Female
  Weight: 50 kg

DRUGS (12)
  1. BLINDED BEVACIZUMAB [Suspect]
     Dosage: UNK
     Route: 042
     Dates: start: 20091229
  2. BLINDED DOXORUBICIN [Suspect]
     Dosage: UNK
     Route: 042
     Dates: start: 20091229
  3. VINCRISTINE [Suspect]
     Indication: DIFFUSE LARGE B-CELL LYMPHOMA
     Dosage: 1.95 MG, UNK
     Route: 042
     Dates: start: 20091229
  4. PREDNISOLONE [Suspect]
     Indication: DIFFUSE LARGE B-CELL LYMPHOMA
     Dosage: 50 MG, BID
     Route: 048
     Dates: start: 20091229
  5. BLINDED RITUXIMAB [Suspect]
     Dosage: UNK
     Route: 042
     Dates: start: 20091229
  6. CYCLOPHOSPHAMIDE [Suspect]
     Indication: DIFFUSE LARGE B-CELL LYMPHOMA
     Dosage: 1042.5 MG, QD
     Route: 042
     Dates: start: 20091229
  7. PREDNISONE TAB [Suspect]
     Dosage: UNK
     Route: 042
     Dates: start: 20091229
  8. VINCRISTINE [Suspect]
     Dosage: UNK
     Route: 042
     Dates: start: 20091229
  9. RITUXIMAB [Suspect]
     Indication: DIFFUSE LARGE B-CELL LYMPHOMA
     Dosage: 521.25 MG, QD
     Route: 042
     Dates: start: 20091229
  10. CYCLOPHOSPHAMIDE [Suspect]
     Dosage: UNK
     Route: 042
     Dates: start: 20091229
  11. BLINDED PLACEBO [Suspect]
     Dosage: UNK
     Route: 042
     Dates: start: 20091229
  12. DOXORUBICIN [Suspect]
     Indication: DIFFUSE LARGE B-CELL LYMPHOMA
     Dosage: 69.5 MG, QD
     Route: 042
     Dates: start: 20091229

REACTIONS (5)
  - CONVULSION [None]
  - NEUTROPENIA [None]
  - INFECTION [None]
  - PNEUMONIA [None]
  - PYREXIA [None]
